FAERS Safety Report 12368784 (Version 3)
Quarter: 2016Q2

REPORT INFORMATION
  Report Type: Spontaneous
  Country: PL (occurrence: PL)
  Receive Date: 20160513
  Receipt Date: 20160628
  Transmission Date: 20160815
  Serious: Yes (Death, Hospitalization)
  Sender: FDA-Public Use
  Company Number: PL-ELI_LILLY_AND_COMPANY-PL201605004725

PATIENT
  Age: 67 Year
  Sex: Male
  Weight: 89 kg

DRUGS (1)
  1. ERBITUX [Suspect]
     Active Substance: CETUXIMAB
     Indication: SQUAMOUS CELL CARCINOMA OF HEAD AND NECK
     Dosage: 250 MG/M2, WEEKLY (1/W)
     Route: 042
     Dates: start: 20160113, end: 20160304

REACTIONS (10)
  - Respiratory failure [Fatal]
  - Condition aggravated [Fatal]
  - Loss of consciousness [Not Recovered/Not Resolved]
  - Depressed level of consciousness [Unknown]
  - Pneumonia [Fatal]
  - Confusional state [Unknown]
  - Circulatory collapse [Fatal]
  - Pulmonary oedema [Not Recovered/Not Resolved]
  - Somnolence [Unknown]
  - Illogical thinking [Unknown]

NARRATIVE: CASE EVENT DATE: 20160311
